FAERS Safety Report 12536941 (Version 1)
Quarter: 2016Q3

REPORT INFORMATION
  Report Type: Report from Study
  Country: JP (occurrence: JP)
  Receive Date: 20160707
  Receipt Date: 20160707
  Transmission Date: 20161109
  Serious: Yes (Hospitalization)
  Sender: FDA-Public Use
  Company Number: JP-SA-2016SA122781

PATIENT
  Age: 65 Year
  Sex: Male
  Weight: 60.2 kg

DRUGS (6)
  1. DIOVAN [Concomitant]
     Active Substance: VALSARTAN
  2. TAKEPRON OD [Concomitant]
     Active Substance: LANSOPRAZOLE
  3. PLAVIX [Suspect]
     Active Substance: CLOPIDOGREL BISULFATE
     Indication: ARTERIAL OCCLUSIVE DISEASE
     Route: 065
     Dates: start: 20120919, end: 20130417
  4. LIPITOR [Concomitant]
     Active Substance: ATORVASTATIN CALCIUM
  5. INVESTIGATIONAL DRUG [Suspect]
     Active Substance: INVESTIGATIONAL PRODUCT
     Indication: ARTERIAL OCCLUSIVE DISEASE
     Route: 065
     Dates: start: 20120919, end: 20130417
  6. MUCOSTA [Concomitant]
     Active Substance: REBAMIPIDE

REACTIONS (1)
  - Small intestine carcinoma [Recovered/Resolved]

NARRATIVE: CASE EVENT DATE: 20130411
